FAERS Safety Report 11213899 (Version 1)
Quarter: 2015Q2

REPORT INFORMATION
  Report Type: Spontaneous
  Country: US (occurrence: US)
  Receive Date: 20150623
  Receipt Date: 20150623
  Transmission Date: 20150821
  Serious: No
  Sender: FDA-Public Use
  Company Number: US-TAKEDA-2015TUS003616

PATIENT
  Sex: Female
  Weight: 53.61 kg

DRUGS (7)
  1. CRANBERRY                          /01512301/ [Concomitant]
     Indication: BLADDER DISORDER
     Dosage: UNK
     Route: 048
  2. ZETIA [Concomitant]
     Active Substance: EZETIMIBE
     Indication: BLOOD CHOLESTEROL INCREASED
     Dosage: UNK
     Route: 048
  3. AMARYL [Concomitant]
     Active Substance: GLIMEPIRIDE
     Indication: DIABETES MELLITUS
     Dosage: UNK
     Route: 048
  4. AZO [Concomitant]
     Active Substance: PHENAZOPYRIDINE HYDROCHLORIDE
     Indication: BLADDER DISORDER
     Dosage: UNK
     Route: 048
  5. ASPIRIN. [Concomitant]
     Active Substance: ASPIRIN
     Indication: PROPHYLAXIS
     Dosage: UNK, QD
     Route: 048
  6. MYRBETEIQ [Concomitant]
     Indication: HYPERTONIC BLADDER
     Dosage: UNK
     Route: 048
  7. NESINA [Suspect]
     Active Substance: ALOGLIPTIN BENZOATE
     Indication: TYPE 2 DIABETES MELLITUS
     Dosage: 25 MG, 1 TAB QD
     Route: 048
     Dates: start: 20150318

REACTIONS (2)
  - Drug dispensing error [Unknown]
  - No adverse event [Unknown]
